FAERS Safety Report 9797035 (Version 1)
Quarter: 2014Q1

REPORT INFORMATION
  Report Type: Spontaneous
  Country: US (occurrence: US)
  Receive Date: 20140105
  Receipt Date: 20140105
  Transmission Date: 20141002
  Serious: Yes (Other)
  Sender: FDA-Public Use
  Company Number: US-ROCHE-1328778

PATIENT
  Age: 20 Year
  Sex: Female

DRUGS (4)
  1. XOLAIR [Suspect]
     Indication: CYSTIC FIBROSIS
     Route: 058
  2. XOLAIR [Suspect]
     Indication: HYPERSENSITIVITY
  3. ZETONNA [Concomitant]
  4. PULMOZYME [Concomitant]
     Route: 065

REACTIONS (2)
  - Sinus operation [Unknown]
  - Injection site rash [Recovered/Resolved]
